FAERS Safety Report 12309378 (Version 1)
Quarter: 2016Q2

REPORT INFORMATION
  Report Type: Report from Study
  Country: BR (occurrence: BR)
  Receive Date: 20160427
  Receipt Date: 20160427
  Transmission Date: 20160815
  Serious: Yes (Other)
  Sender: FDA-Public Use
  Company Number: PHHY2016BR047346

PATIENT
  Age: 78 Year
  Sex: Male
  Weight: 61 kg

DRUGS (2)
  1. SIMVASTATIN. [Concomitant]
     Active Substance: SIMVASTATIN
     Indication: BLOOD CHOLESTEROL INCREASED
     Dosage: 1 DF, QD
     Route: 048
  2. ACLASTA [Suspect]
     Active Substance: ZOLEDRONIC ACID
     Indication: OSTEOPOROSIS
     Dosage: 5 MG, Q12MO (1 AMPOULE)
     Route: 042
     Dates: start: 201505

REACTIONS (6)
  - Asthenia [Recovered/Resolved]
  - Syncope [Recovered/Resolved]
  - Feeling abnormal [Recovered/Resolved]
  - Fear [Recovered/Resolved]
  - Unresponsive to stimuli [Recovered/Resolved]
  - Pollakiuria [Recovered/Resolved]

NARRATIVE: CASE EVENT DATE: 201505
